FAERS Safety Report 5271607-7 (Version None)
Quarter: 2007Q1

REPORT INFORMATION
  Report Type: 
  Country: None (occurrence: None)
  Receive Date: 20070321
  Receipt Date: 20070201
  Transmission Date: 20070707
  Serious: Yes (Other)
  Sender: FDA-Public Use
  Company Number: CA-PFIZER INC-2007009316

PATIENT
  Sex: Female
  Weight: 134.7 kg

DRUGS (7)
  1. LYRICA [Suspect]
     Indication: NEURALGIA
  2. DILTIAZEM [Concomitant]
  3. METOPROLOL SUCCINATE [Concomitant]
  4. ALTACE [Concomitant]
  5. SYNTHROID [Concomitant]
     Indication: HYPOTHYROIDISM
  6. METFORMIN HCL [Concomitant]
     Indication: OBSESSIVE-COMPULSIVE DISORDER
  7. WARFARIN SODIUM [Concomitant]

REACTIONS (2)
  - INSOMNIA [None]
  - PAIN [None]
